FAERS Safety Report 8250320-8 (Version None)
Quarter: 2012Q2

REPORT INFORMATION
  Report Type: 
  Country: None (occurrence: None)
  Receive Date: 20120402
  Receipt Date: 20120322
  Transmission Date: 20120825
  Serious: Yes (Hospitalization, Other)
  Sender: FDA-Public Use
  Company Number: US-ACTELION-A-US2012-62496

PATIENT

DRUGS (4)
  1. DABIGATRAN [Suspect]
  2. SILDENAFIL [Concomitant]
  3. LETAIRIS [Concomitant]
  4. EPOPROSTENOL SODIUM [Suspect]
     Indication: PULMONARY ARTERIAL HYPERTENSION
     Dosage: 29.5 NG/KG, PER MIN
     Route: 042
     Dates: start: 20110902

REACTIONS (9)
  - MELAENA [None]
  - GASTROINTESTINAL HAEMORRHAGE [None]
  - HAEMOGLOBIN DECREASED [None]
  - PACKED RED BLOOD CELL TRANSFUSION [None]
  - HAEMATOCRIT DECREASED [None]
  - CONSTIPATION [None]
  - BLOOD PRODUCT TRANSFUSION [None]
  - ARTERIOVENOUS MALFORMATION [None]
  - THROMBOCYTOPENIA [None]
